FAERS Safety Report 23333640 (Version 1)
Quarter: 2023Q4

REPORT INFORMATION
  Report Type: Other
  Country: US (occurrence: None)
  Receive Date: 20231222
  Receipt Date: 20231222
  Transmission Date: 20240109
  Serious: No
  Sender: FDA-Public Use
  Company Number: US-ROCHE-2981932

PATIENT
  Age: 35 Year
  Sex: Male

DRUGS (2)
  1. OCREVUS [Suspect]
     Active Substance: OCRELIZUMAB
     Indication: Relapsing multiple sclerosis
     Dosage: DATE OF TREATMENT: 2021-11-22?INFUSE 300 MG ON DAY 1 AND DAY 15, THEN INFUSE 600 MG EVERY 6 MONTHS
     Route: 065
     Dates: start: 20211122
  2. CHOLECALCIFEROL [Concomitant]
     Active Substance: CHOLECALCIFEROL

REACTIONS (2)
  - Malaise [Unknown]
  - Influenza [Unknown]
